FAERS Safety Report 7768723-4 (Version None)
Quarter: 2011Q3

REPORT INFORMATION
  Report Type: 
  Country: None (occurrence: None)
  Receive Date: 20110922
  Receipt Date: 20100922
  Transmission Date: 20111222
  Serious: No
  Sender: FDA-Public Use
  Company Number: US-ASTRAZENECA-2010SE44583

PATIENT
  Sex: Female
  Weight: 182 kg

DRUGS (1)
  1. SEROQUEL [Suspect]
     Indication: MOOD SWINGS
     Dosage: 100MG HALF TABLET IN AM AND 100MG 2.5 TABLETS HS
     Route: 048
     Dates: start: 20100101, end: 20100917

REACTIONS (4)
  - INSOMNIA [None]
  - DIARRHOEA [None]
  - MUSCLE SPASMS [None]
  - DRUG DOSE OMISSION [None]
